FAERS Safety Report 18883517 (Version 1)
Quarter: 2021Q1

REPORT INFORMATION
  Report Type: Spontaneous
  Country: IT (occurrence: IT)
  Receive Date: 20210212
  Receipt Date: 20210212
  Transmission Date: 20210420
  Serious: Yes (Other)
  Sender: FDA-Public Use
  Company Number: IT-TEVA-2021-IT-1878608

PATIENT
  Age: 60 Year
  Sex: Female

DRUGS (2)
  1. EPIRUBICIN HYDROCHLORIDE. [Suspect]
     Active Substance: EPIRUBICIN HYDROCHLORIDE
     Indication: TRIPLE NEGATIVE BREAST CANCER
     Dosage: 148 MG
     Route: 042
     Dates: start: 20201104, end: 20210119
  2. CYCLOPHOSPHAMIDE. [Suspect]
     Active Substance: CYCLOPHOSPHAMIDE
     Indication: TRIPLE NEGATIVE BREAST CANCER
     Dosage: 990 MG
     Route: 042
     Dates: start: 20201104, end: 20210119

REACTIONS (2)
  - Skin toxicity [Unknown]
  - Skin hyperpigmentation [Unknown]

NARRATIVE: CASE EVENT DATE: 20210119
